FAERS Safety Report 25181600 (Version 1)
Quarter: 2025Q2

REPORT INFORMATION
  Report Type: Spontaneous
  Country: CN (occurrence: CN)
  Receive Date: 20250410
  Receipt Date: 20250410
  Transmission Date: 20250716
  Serious: Yes (Other)
  Sender: Phathom Pharmaceuticals
  Company Number: CN-PHATHOM PHARMACEUTICALS INC.-2025PHT00734

PATIENT
  Sex: Female

DRUGS (2)
  1. VONOPRAZAN [Suspect]
     Active Substance: VONOPRAZAN
     Indication: Product used for unknown indication
     Route: 048
  2. ELTHON [DIAZEPAM;VERAPAMIL HYDROCHLORIDE] [Concomitant]

REACTIONS (2)
  - Oesophageal ulcer [Unknown]
  - Abdominal pain upper [Unknown]
